FAERS Safety Report 9003314 (Version 2)
Quarter: 2013Q1

REPORT INFORMATION
  Report Type: Spontaneous
  Country: US (occurrence: US)
  Receive Date: 20130108
  Receipt Date: 20130306
  Transmission Date: 20140127
  Serious: Yes (Hospitalization)
  Sender: FDA-Public Use
  Company Number: US-GILEAD-2013-0067251

PATIENT
  Age: 43 Year
  Sex: Male

DRUGS (1)
  1. LETAIRIS [Suspect]
     Indication: HEART DISEASE CONGENITAL
     Dosage: 10 MG, QD
     Route: 048
     Dates: start: 20110927

REACTIONS (1)
  - Unevaluable event [Unknown]
